FAERS Safety Report 5351369-5 (Version None)
Quarter: 2007Q2

REPORT INFORMATION
  Report Type: 
  Country: None (occurrence: None)
  Receive Date: 20070608
  Receipt Date: 20070531
  Transmission Date: 20071010
  Serious: Yes (Other)
  Sender: FDA-Public Use
  Company Number: US-PFIZER INC-2007045563

PATIENT
  Sex: Female
  Weight: 77.272 kg

DRUGS (8)
  1. CHANTIX [Suspect]
     Indication: SMOKING CESSATION THERAPY
  2. METHADONE HCL [Concomitant]
  3. OXYCODONE HCL [Concomitant]
  4. LIPITOR [Concomitant]
  5. SYNTHROID [Concomitant]
  6. TOPAMAX [Concomitant]
     Indication: MIGRAINE
  7. WELLBUTRIN [Concomitant]
  8. ALPRAZOLAM [Concomitant]
     Indication: SLEEP DISORDER

REACTIONS (8)
  - CHEST PAIN [None]
  - COUGH [None]
  - HEADACHE [None]
  - IMPAIRED SELF-CARE [None]
  - LOSS OF CONSCIOUSNESS [None]
  - NAUSEA [None]
  - RESPIRATORY DISORDER [None]
  - WHEEZING [None]
